FAERS Safety Report 21550867 (Version 2)
Quarter: 2022Q4

REPORT INFORMATION
  Report Type: Spontaneous
  Country: US (occurrence: US)
  Receive Date: 20221103
  Receipt Date: 20221202
  Transmission Date: 20230113
  Serious: No
  Sender: FDA-Public Use
  Company Number: US-TEVA-2022-US-2821581

PATIENT
  Age: 71 Year
  Sex: Female

DRUGS (1)
  1. PROAIR HFA [Suspect]
     Active Substance: ALBUTEROL SULFATE
     Indication: Product used for unknown indication
     Dosage: 90 MCG/DOSE
     Route: 065
     Dates: start: 2019

REACTIONS (4)
  - Drug hypersensitivity [Unknown]
  - Skin wound [Unknown]
  - Product prescribing issue [Unknown]
  - Device malfunction [Unknown]
